FAERS Safety Report 24640797 (Version 1)
Quarter: 2024Q4

REPORT INFORMATION
  Report Type: Report from Study
  Country: CN (occurrence: CN)
  Receive Date: 20241120
  Receipt Date: 20241120
  Transmission Date: 20250114
  Serious: Yes (Hospitalization)
  Sender: RANBAXY
  Company Number: CN-SUN PHARMACEUTICAL INDUSTRIES LTD-2024R1-479580

PATIENT
  Age: 27 Year
  Sex: Female

DRUGS (2)
  1. BACLOFEN [Suspect]
     Active Substance: BACLOFEN
     Indication: Muscle spasticity
     Dosage: 147 MICROGRAM, DAILY
  2. BACLOFEN [Suspect]
     Active Substance: BACLOFEN
     Indication: Dystonia

REACTIONS (1)
  - Nausea [Unknown]
